FAERS Safety Report 18485317 (Version 1)
Quarter: 2020Q4

REPORT INFORMATION
  Report Type: Spontaneous
  Country: US (occurrence: US)
  Receive Date: 20201109
  Receipt Date: 20201109
  Transmission Date: 20210114
  Serious: No
  Sender: FDA-Public Use
  Company Number: None

PATIENT
  Age: 60 Year
  Sex: Male
  Weight: 70.3 kg

DRUGS (7)
  1. BUPROPION HCL ER (XL) [Concomitant]
     Active Substance: BUPROPION HYDROCHLORIDE
  2. REVLIMID 10 MG CAPSULE [Concomitant]
  3. METHADONE HCL [Concomitant]
     Active Substance: METHADONE HYDROCHLORIDE
  4. MIRTAZAPINE. [Concomitant]
     Active Substance: MIRTAZAPINE
  5. ALLOPURINOL. [Concomitant]
     Active Substance: ALLOPURINOL
  6. QUETIAPINE FUMARATE. [Concomitant]
     Active Substance: QUETIAPINE FUMARATE
  7. NINLARO [Suspect]
     Active Substance: IXAZOMIB CITRATE
     Indication: PLASMA CELL MYELOMA
     Dosage: ?          OTHER FREQUENCY:D1,D8,D15;?
     Route: 048
     Dates: start: 20201019, end: 20201026

REACTIONS (4)
  - Decreased appetite [None]
  - Ageusia [None]
  - Weight decreased [None]
  - Therapy interrupted [None]

NARRATIVE: CASE EVENT DATE: 20201027
